FAERS Safety Report 24820644 (Version 2)
Quarter: 2025Q2

REPORT INFORMATION
  Report Type: Spontaneous
  Country: FR (occurrence: FR)
  Receive Date: 20250108
  Receipt Date: 20250430
  Transmission Date: 20250717
  Serious: Yes (Life-Threatening)
  Sender: pharmaAND
  Company Number: FR-AFSSAPS-NC2024001622

PATIENT
  Age: 77 Year
  Sex: Female
  Weight: 61 kg

DRUGS (1)
  1. PEGASYS [Suspect]
     Active Substance: PEGINTERFERON ALFA-2A
     Indication: Essential thrombocythaemia
     Route: 058
     Dates: start: 20240615, end: 20241015

REACTIONS (2)
  - Myositis [Recovering/Resolving]
  - Dysphagia [Recovered/Resolved]

NARRATIVE: CASE EVENT DATE: 20241001
